FAERS Safety Report 14814038 (Version 1)
Quarter: 2018Q2

REPORT INFORMATION
  Report Type: Spontaneous
  Country: FR (occurrence: FR)
  Receive Date: 20180426
  Receipt Date: 20180426
  Transmission Date: 20180711
  Serious: Yes (Other)
  Sender: FDA-Public Use
  Company Number: FR-MERCK KGAA-2046596

PATIENT
  Sex: Female

DRUGS (1)
  1. NOVOTHYROX [Suspect]
     Active Substance: LEVOTHYROXINE SODIUM
     Indication: PRODUCT USED FOR UNKNOWN INDICATION

REACTIONS (13)
  - Nausea [None]
  - Mood swings [None]
  - Irritability [None]
  - Asthenia [None]
  - Vertigo [None]
  - Blood creatinine decreased [None]
  - Headache [None]
  - Eye pain [None]
  - Asthma [None]
  - Nervousness [None]
  - Cataract [None]
  - Fatigue [None]
  - Mood altered [None]

NARRATIVE: CASE EVENT DATE: 20171206
